FAERS Safety Report 5355144-7 (Version None)
Quarter: 2007Q2

REPORT INFORMATION
  Report Type: 
  Country: None (occurrence: None)
  Receive Date: 20070613
  Receipt Date: 20070601
  Transmission Date: 20071010
  Serious: Yes (Other)
  Sender: FDA-Public Use
  Company Number: HQWYE488005JUN07

PATIENT
  Age: 26 Year
  Sex: Female

DRUGS (4)
  1. EFFEXOR XR [Suspect]
     Indication: GENERALISED ANXIETY DISORDER
     Dosage: 225 MG (FREQUENCY UNSPECIFIED)
     Route: 048
     Dates: start: 20060401, end: 20061001
  2. EFFEXOR XR [Suspect]
     Indication: MAJOR DEPRESSION
     Dosage: 150 MG (FREQUENCY UNSPECIFIED)
     Route: 048
     Dates: start: 20061001, end: 20070101
  3. EFFEXOR XR [Suspect]
     Dosage: DOSE REDUCED
     Route: 048
     Dates: start: 20070101, end: 20070401
  4. EFFEXOR XR [Suspect]
     Route: 048
     Dates: start: 20070401, end: 20070501

REACTIONS (5)
  - ANXIETY [None]
  - DRUG WITHDRAWAL SYNDROME [None]
  - HALLUCINATION [None]
  - RESTLESSNESS [None]
  - SOMNOLENCE [None]
